FAERS Safety Report 23944311 (Version 1)
Quarter: 2024Q2

REPORT INFORMATION
  Report Type: Spontaneous
  Country: US (occurrence: US)
  Receive Date: 20240606
  Receipt Date: 20240606
  Transmission Date: 20240716
  Serious: Yes (Hospitalization)
  Sender: FDA-Public Use
  Company Number: US-ACELLA PHARMACEUTICALS, LLC-2024ALO00226

PATIENT
  Age: 22 Year

DRUGS (12)
  1. GABAPENTIN [Suspect]
     Active Substance: GABAPENTIN
     Indication: Headache
     Dosage: 100 MG, 3X/DAY
     Dates: start: 20220112, end: 20220209
  2. GABAPENTIN [Suspect]
     Active Substance: GABAPENTIN
     Dosage: 300 MG, 3X/DAY
     Dates: start: 20220210
  3. GABAPENTIN [Suspect]
     Active Substance: GABAPENTIN
     Dosage: TAPER STARTED
     Dates: start: 20220405, end: 2022
  4. GABAPENTIN [Suspect]
     Active Substance: GABAPENTIN
     Dosage: 200 MG
     Dates: start: 2022, end: 2022
  5. GABAPENTIN [Suspect]
     Active Substance: GABAPENTIN
     Dosage: BACK TO 300 MG, 3X/DAY
     Dates: start: 2022, end: 20220424
  6. AMANTADINE [Suspect]
     Active Substance: AMANTADINE
     Indication: Post-traumatic headache
     Dosage: 100 MG, 2X/DAY
     Dates: start: 20220405, end: 20220424
  7. BUPROPION [Suspect]
     Active Substance: BUPROPION
     Indication: Mood altered
     Dosage: 300 MG, 1X/DAY
  8. BUPROPION [Suspect]
     Active Substance: BUPROPION
     Dosage: 450 MG, 1X/DAY
     Dates: start: 20220301, end: 20220428
  9. DULOXETINE [Suspect]
     Active Substance: DULOXETINE
     Dosage: 40 MG, 2X/DAY
     Dates: end: 20220424
  10. DULOXETINE [Suspect]
     Active Substance: DULOXETINE
     Dosage: 40 MG, 1X/DAY
     Dates: start: 202204
  11. ONDANSETRON [Concomitant]
     Active Substance: ONDANSETRON
     Dosage: UNK
     Dates: start: 202112
  12. BOTULINUM TOXIN NOS [Concomitant]
     Active Substance: BOTULINUM TOXIN NOS
     Dosage: UNK, INJECTIONS
     Dates: start: 20220308

REACTIONS (1)
  - Serotonin syndrome [Recovered/Resolved]

NARRATIVE: CASE EVENT DATE: 20220415
